FAERS Safety Report 5128130-X (Version None)
Quarter: 2006Q4

REPORT INFORMATION
  Report Type: 
  Country: None (occurrence: None)
  Receive Date: 20061011
  Receipt Date: 20060921
  Transmission Date: 20070319
  Serious: Yes (Hospitalization)
  Sender: FDA-Public Use
  Company Number: 229982

PATIENT
  Age: 50 Year
  Sex: Female

DRUGS (6)
  1. TRASTUZUMAB(TRASTUZUMAB) PWDR + SOLVENT, INFUSION SOLN, 440MG [Suspect]
     Indication: BREAST CANCER METASTATIC
     Dosage: 2 MG/KG, 1/WEEK, INTRAVENOUS
     Route: 042
     Dates: start: 20051202
  2. NAVELBINE [Suspect]
     Indication: BREAST CANCER METASTATIC
     Dosage: 60 MG/M2, 1/WEEK, ORAL
     Route: 048
     Dates: start: 20051202
  3. CAPECITABINE(CAPECITABINE) [Suspect]
     Indication: BREAST CANCER METASTATIC
     Dosage: 750  MG/M2, BID, ORAL
     Route: 048
     Dates: start: 20051202
  4. TRAMADOL HCL [Concomitant]
  5. ESOMEPRAZOLE (ESOMEPRAZOLE MAGNESIUM) [Concomitant]
  6. MAXOLON [Concomitant]

REACTIONS (9)
  - CATHETER RELATED COMPLICATION [None]
  - CENTRAL LINE INFECTION [None]
  - CHEST PAIN [None]
  - DIARRHOEA [None]
  - DYSPNOEA [None]
  - HAEMOGLOBIN DECREASED [None]
  - STAPHYLOCOCCAL INFECTION [None]
  - THROMBOSIS [None]
  - WHITE BLOOD CELL COUNT DECREASED [None]
